FAERS Safety Report 18500394 (Version 2)
Quarter: 2020Q4

REPORT INFORMATION
  Report Type: Spontaneous
  Country: US (occurrence: US)
  Receive Date: 20201113
  Receipt Date: 20201116
  Transmission Date: 20210114
  Serious: Yes (Other)
  Sender: FDA-Public Use
  Company Number: US-TEVA-2020-US-1848004

PATIENT
  Age: 69 Year
  Sex: Female

DRUGS (2)
  1. BUDESONIDE ER [Suspect]
     Active Substance: BUDESONIDE
     Indication: DIVERTICULITIS
     Route: 065
     Dates: start: 20200902, end: 20201018
  2. MESALAMINE. [Suspect]
     Active Substance: MESALAMINE
     Indication: DIVERTICULITIS
     Dosage: FORM OF ADMIN: DELAYED-RELEASE TABLETS, DOSE: 4 TABLETS AND TOOK THEM AT DINNER TIME
     Route: 065
     Dates: start: 20200616, end: 2020

REACTIONS (16)
  - Decreased appetite [Unknown]
  - Retinal migraine [Unknown]
  - Headache [Unknown]
  - Neck pain [Unknown]
  - Blister [Unknown]
  - Therapeutic product effect incomplete [Unknown]
  - Vision blurred [Unknown]
  - Liver function test increased [Unknown]
  - Weight decreased [Unknown]
  - Chills [Unknown]
  - Nervousness [Unknown]
  - Malaise [Unknown]
  - Chillblains [Unknown]
  - Diverticulum intestinal haemorrhagic [Unknown]
  - Pyrexia [Unknown]
  - Night sweats [Unknown]

NARRATIVE: CASE EVENT DATE: 2020
